FAERS Safety Report 12403059 (Version 2)
Quarter: 2016Q2

REPORT INFORMATION
  Report Type: Spontaneous
  Country: JP (occurrence: JP)
  Receive Date: 20160525
  Receipt Date: 20160617
  Transmission Date: 20160815
  Serious: Yes (Hospitalization, Disabling)
  Sender: FDA-Public Use
  Company Number: JP-SA-2016SA098704

PATIENT
  Age: 42 Year
  Sex: Male

DRUGS (11)
  1. FLUDARABINE PHOSPHATE. [Suspect]
     Active Substance: FLUDARABINE PHOSPHATE
     Indication: PREMEDICATION
     Route: 065
     Dates: start: 2014
  2. GEMCITABINE [Concomitant]
     Active Substance: GEMCITABINE\GEMCITABINE HYDROCHLORIDE
  3. RITUXIMAB [Concomitant]
     Active Substance: RITUXIMAB
  4. PREDNISOLONE. [Suspect]
     Active Substance: PREDNISOLONE
     Indication: ENGRAFTMENT SYNDROME
     Route: 065
     Dates: start: 2014
  5. BUSULPHAN [Suspect]
     Active Substance: BUSULFAN
     Indication: PREMEDICATION
     Route: 065
     Dates: start: 2014
  6. DEXAMETHASONE. [Concomitant]
     Active Substance: DEXAMETHASONE
  7. MYCOPHENOLATE MOFETIL. [Concomitant]
     Active Substance: MYCOPHENOLATE MOFETIL
     Indication: PROPHYLAXIS AGAINST GRAFT VERSUS HOST DISEASE
     Dates: start: 201410
  8. GANCICLOVIR. [Concomitant]
     Active Substance: GANCICLOVIR
     Dates: start: 2014
  9. PREDNISOLONE. [Suspect]
     Active Substance: PREDNISOLONE
     Indication: ENGRAFTMENT SYNDROME
     Route: 065
     Dates: start: 2014
  10. TACROLIMUS. [Suspect]
     Active Substance: TACROLIMUS
     Indication: PROPHYLAXIS AGAINST GRAFT VERSUS HOST DISEASE
     Route: 065
     Dates: start: 201410
  11. CISPLATIN. [Concomitant]
     Active Substance: CISPLATIN

REACTIONS (10)
  - Decreased vibratory sense [Recovering/Resolving]
  - Neuropathy peripheral [Recovering/Resolving]
  - Erythema [Recovering/Resolving]
  - Hypoaesthesia [Recovering/Resolving]
  - Axonal neuropathy [Recovering/Resolving]
  - Nerve conduction studies abnormal [Recovering/Resolving]
  - Hyporeflexia [Recovering/Resolving]
  - Abasia [Recovering/Resolving]
  - Dysstasia [Recovering/Resolving]
  - Muscular weakness [Recovering/Resolving]

NARRATIVE: CASE EVENT DATE: 2014
